FAERS Safety Report 5314036-X (Version None)
Quarter: 2007Q2

REPORT INFORMATION
  Report Type: 
  Country: None (occurrence: None)
  Receive Date: 20070501
  Receipt Date: 20070416
  Transmission Date: 20071010
  Serious: Yes (Other)
  Sender: FDA-Public Use
  Company Number: US-SHR-US-2007-005248

PATIENT
  Age: 18 Year
  Sex: Female

DRUGS (5)
  1. BETASERON [Suspect]
     Dosage: 8 MIU, EVERY 2D
     Route: 058
     Dates: start: 20070110
  2. PERCOCET [Concomitant]
     Indication: HEADACHE
  3. DOCULACE [Concomitant]
  4. VITAMINS [Concomitant]
  5. GABAPENTIN [Concomitant]

REACTIONS (4)
  - INFREQUENT BOWEL MOVEMENTS [None]
  - INJECTION SITE REACTION [None]
  - MULTIPLE SCLEROSIS [None]
  - WEIGHT INCREASED [None]
